FAERS Safety Report 8780382 (Version 1)
Quarter: 2012Q4

REPORT INFORMATION
  Report Type: Spontaneous
  Country: US (occurrence: None)
  Receive Date: 20120905
  Receipt Date: 20120905
  Transmission Date: 20130627
  Serious: No
  Sender: FDA-Public Use
  Company Number: None

PATIENT
  Age: 41 Year
  Sex: Female
  Weight: 82.56 kg

DRUGS (1)
  1. MIRENA [Suspect]
     Indication: CONTRACEPTION

REACTIONS (6)
  - Pain [None]
  - Haemorrhage [None]
  - Back pain [None]
  - Insomnia [None]
  - Blood pressure increased [None]
  - Weight loss poor [None]
